FAERS Safety Report 17737349 (Version 1)
Quarter: 2020Q2

REPORT INFORMATION
  Report Type: Spontaneous
  Country: CN (occurrence: CN)
  Receive Date: 20200504
  Receipt Date: 20200504
  Transmission Date: 20200714
  Serious: Yes (Hospitalization, Other)
  Sender: FDA-Public Use
  Company Number: CN-LEADINGPHARMA-CN-2020LEALIT00062

PATIENT
  Age: 36 Year
  Sex: Female

DRUGS (3)
  1. LORAZEPAM TABLETS USP [Suspect]
     Active Substance: LORAZEPAM
     Indication: SCHIZOPHRENIA
     Route: 065
  2. LITHIUM CARBONATE. [Suspect]
     Active Substance: LITHIUM CARBONATE
     Indication: SCHIZOPHRENIA
     Route: 065
  3. CLOZAPINE. [Suspect]
     Active Substance: CLOZAPINE
     Indication: SCHIZOPHRENIA
     Route: 065

REACTIONS (8)
  - Neurological examination abnormal [Recovered/Resolved]
  - Product use in unapproved indication [Unknown]
  - Heat stroke [Recovered/Resolved]
  - Rhabdomyolysis [Recovered/Resolved]
  - Hyperthermia [Recovered/Resolved]
  - Metabolic acidosis [Recovered/Resolved]
  - Disseminated intravascular coagulation [Recovered/Resolved]
  - Multiple organ dysfunction syndrome [Recovered/Resolved]
